FAERS Safety Report 6122622-2 (Version None)
Quarter: 2009Q1

REPORT INFORMATION
  Report Type: 
  Country: None (occurrence: None)
  Receive Date: 20090318
  Receipt Date: 20090311
  Transmission Date: 20090719
  Serious: Yes (Other)
  Sender: FDA-Public Use
  Company Number: US-ASTRAZENECA-2009UW06407

PATIENT
  Age: 68 Year
  Sex: Female
  Weight: 72.7 kg

DRUGS (7)
  1. ARIMIDEX [Suspect]
     Indication: BREAST CANCER
     Route: 048
     Dates: start: 20080101, end: 20080101
  2. ARIMIDEX [Suspect]
     Route: 048
     Dates: start: 20080101, end: 20080101
  3. CHANTIX [Suspect]
     Indication: SMOKING CESSATION THERAPY
     Route: 048
     Dates: start: 20080229, end: 20080302
  4. CHANTIX [Suspect]
     Route: 048
     Dates: start: 20080303, end: 20080306
  5. CHANTIX [Suspect]
     Route: 048
     Dates: start: 20080307
  6. AROMASIN [Suspect]
     Indication: BREAST CANCER
     Route: 048
     Dates: start: 20080101
  7. PREMARIN [Concomitant]
     Indication: HORMONE THERAPY

REACTIONS (14)
  - ANAEMIA [None]
  - BLOOD PRESSURE INCREASED [None]
  - BREAST CANCER [None]
  - DIZZINESS [None]
  - FATIGUE [None]
  - FEELING ABNORMAL [None]
  - HAEMORRHAGE [None]
  - HEADACHE [None]
  - HYPERSENSITIVITY [None]
  - PAIN [None]
  - PARAESTHESIA [None]
  - PARAESTHESIA ORAL [None]
  - SKIN INJURY [None]
  - SYNCOPE [None]
